FAERS Safety Report 19813683 (Version 7)
Quarter: 2022Q1

REPORT INFORMATION
  Report Type: Report from Study
  Country: US (occurrence: US)
  Receive Date: 20210909
  Receipt Date: 20220307
  Transmission Date: 20220424
  Serious: Yes (Hospitalization, Other)
  Sender: FDA-Public Use
  Company Number: NVSC2021US205038

PATIENT
  Age: 52 Year
  Sex: Female

DRUGS (8)
  1. ENTRESTO [Suspect]
     Active Substance: SACUBITRIL\VALSARTAN
     Indication: Product used for unknown indication
     Dosage: 1 DF, BID (49/51 MG)
     Route: 048
     Dates: start: 202106
  2. CARVEDILOL [Suspect]
     Active Substance: CARVEDILOL
     Indication: Product used for unknown indication
     Dosage: UNK
     Route: 065
  3. LASIX [Suspect]
     Active Substance: FUROSEMIDE
     Indication: Product used for unknown indication
     Dosage: UNK UNK, BIW
     Route: 065
  4. LASIX [Suspect]
     Active Substance: FUROSEMIDE
     Dosage: UNK, Q2W
     Route: 065
  5. VITAMIN D3 [Suspect]
     Active Substance: CHOLECALCIFEROL
     Indication: Product used for unknown indication
     Dosage: UNK
     Route: 065
  6. VITAMIN C [Suspect]
     Active Substance: ASCORBIC ACID
     Indication: Product used for unknown indication
     Dosage: UNK
     Route: 065
  7. MAGNESIUM [Suspect]
     Active Substance: MAGNESIUM
     Indication: Product used for unknown indication
     Dosage: UNK
     Route: 065
  8. COENZYME Q10 [Suspect]
     Active Substance: DIETARY SUPPLEMENT\UBIDECARENONE
     Indication: Product used for unknown indication
     Dosage: UNK
     Route: 065

REACTIONS (12)
  - Pneumonia [Unknown]
  - Dyspnoea [Unknown]
  - Hot flush [Unknown]
  - Weight decreased [Unknown]
  - Thinking abnormal [Unknown]
  - Dehydration [Unknown]
  - Dizziness [Unknown]
  - Cough [Unknown]
  - Hypotension [Unknown]
  - Inappropriate schedule of product administration [Unknown]
  - Throat clearing [Not Recovered/Not Resolved]
  - Fatigue [Unknown]

NARRATIVE: CASE EVENT DATE: 20210901
